FAERS Safety Report 14768127 (Version 1)
Quarter: 2018Q2

REPORT INFORMATION
  Report Type: Spontaneous
  Country: US (occurrence: US)
  Receive Date: 20180417
  Receipt Date: 20180417
  Transmission Date: 20180711
  Serious: No
  Sender: FDA-Public Use
  Company Number: US-CELGENEUS-USA-20180404540

PATIENT
  Age: 77 Year
  Sex: Female
  Weight: 82 kg

DRUGS (3)
  1. REVLIMID [Suspect]
     Active Substance: LENALIDOMIDE
     Dosage: 10 MILLIGRAM
     Route: 048
     Dates: start: 201802
  2. REVLIMID [Suspect]
     Active Substance: LENALIDOMIDE
     Dosage: 5 MILLIGRAM
     Route: 048
     Dates: start: 201607
  3. REVLIMID [Suspect]
     Active Substance: LENALIDOMIDE
     Indication: 5Q MINUS SYNDROME
     Dosage: 10 MILLIGRAM
     Route: 048
     Dates: start: 201605

REACTIONS (8)
  - Burning sensation [Not Recovered/Not Resolved]
  - Nausea [Unknown]
  - Tremor [Not Recovered/Not Resolved]
  - Pruritus [Unknown]
  - Dry mouth [Not Recovered/Not Resolved]
  - Flushing [Not Recovered/Not Resolved]
  - Dry eye [Not Recovered/Not Resolved]
  - Dry throat [Unknown]

NARRATIVE: CASE EVENT DATE: 2018
